FAERS Safety Report 9896432 (Version 1)
Quarter: 2014Q1

REPORT INFORMATION
  Report Type: Spontaneous
  Country: US (occurrence: US)
  Receive Date: 20140213
  Receipt Date: 20140213
  Transmission Date: 20141002
  Serious: No
  Sender: FDA-Public Use
  Company Number: US-BRISTOL-MYERS SQUIBB COMPANY-19895937

PATIENT
  Age: 51 Year
  Sex: Female
  Weight: 63.49 kg

DRUGS (5)
  1. ABATACEPT SUBQ INJECTION 125MG/ML [Suspect]
     Route: 058
  2. DAYPRO [Concomitant]
     Dosage: TABS
  3. PREDNISONE [Concomitant]
     Dosage: TABS
  4. VICODIN [Concomitant]
     Dosage: 1 DF= HP TAB 10-660MG
  5. BYSTOLIC [Concomitant]
     Dosage: TABS

REACTIONS (2)
  - Swelling [Unknown]
  - Musculoskeletal stiffness [Unknown]
